FAERS Safety Report 17458714 (Version 2)
Quarter: 2020Q1

REPORT INFORMATION
  Report Type: Report from Study
  Country: US (occurrence: US)
  Receive Date: 20200225
  Receipt Date: 20200326
  Transmission Date: 20200409
  Serious: No
  Sender: FDA-Public Use
  Company Number: US-TAKEDA-2020TUS011589

PATIENT
  Sex: Female

DRUGS (2)
  1. PONATINIB [Suspect]
     Active Substance: PONATINIB
     Indication: CHRONIC MYELOID LEUKAEMIA
     Dosage: 15 MILLIGRAM, QD
     Route: 048
  2. PONATINIB [Suspect]
     Active Substance: PONATINIB
     Indication: PROPHYLAXIS
     Dosage: 15 MILLIGRAM, QOD
     Route: 048

REACTIONS (6)
  - Product label issue [Unknown]
  - Headache [Unknown]
  - Hypertension [Unknown]
  - Depression [Unknown]
  - Abdominal pain [Unknown]
  - Off label use [Unknown]
